FAERS Safety Report 14085278 (Version 6)
Quarter: 2018Q4

REPORT INFORMATION
  Report Type: Spontaneous
  Country: US (occurrence: US)
  Receive Date: 20171013
  Receipt Date: 20181112
  Transmission Date: 20190204
  Serious: No
  Sender: FDA-Public Use
  Company Number: US-PFIZER INC-2017137583

PATIENT
  Age: 72 Year
  Sex: Female
  Weight: 101 kg

DRUGS (7)
  1. SUTENT [Suspect]
     Active Substance: SUNITINIB MALATE
     Dosage: 25 MG CYCLIC (THREE CAPSULES DAILY AT BEDTIME; 2 WEEKS ON AND 1 WEEK OFF)
     Route: 048
     Dates: end: 20171105
  2. LOVASTATIN. [Concomitant]
     Active Substance: LOVASTATIN
     Indication: BLOOD CHOLESTEROL INCREASED
     Dosage: 20 MG, 1X/DAY
     Route: 048
  3. GLIPIZIDE. [Concomitant]
     Active Substance: GLIPIZIDE
     Indication: DIABETES MELLITUS
     Dosage: 10 MG, 2X/DAY (TAKING THIS FOR 7 OR 8 YEARS)
     Route: 048
  4. LISINOPRIL. [Concomitant]
     Active Substance: LISINOPRIL
     Indication: HYPERTENSION
     Dosage: 20 MG, 1X/DAY
     Route: 048
  5. SUTENT [Suspect]
     Active Substance: SUNITINIB MALATE
     Dosage: 25 MG, CYCLIC (12.5 MG CAPSULES (DF), 2DF DAILY FOR 2 WEEKS, ONE WEEK OFF EVERY 21 DAYS)
     Route: 048
     Dates: start: 2018
  6. SUTENT [Suspect]
     Active Substance: SUNITINIB MALATE
     Dosage: 25 MG CYCLIC (THREE CAPSULES DAILY AT BEDTIME; 2 WEEKS ON AND 1 WEEK OFF)
     Route: 048
     Dates: start: 20171129, end: 20180102
  7. SUTENT [Suspect]
     Active Substance: SUNITINIB MALATE
     Indication: GASTROINTESTINAL STROMAL TUMOUR
     Dosage: 37.5 MG, CYCLIC (THREE CAPSULES DAILY AT BEDTIME; 28 DAYS ON AND 14 DAYS OFF)
     Route: 048
     Dates: start: 201702

REACTIONS (20)
  - Weight decreased [Unknown]
  - Oral mucosal blistering [Not Recovered/Not Resolved]
  - Oral mucosal erythema [Not Recovered/Not Resolved]
  - Anorectal disorder [Recovered/Resolved]
  - Vaginal mucosal blistering [Recovering/Resolving]
  - Abdominal discomfort [Unknown]
  - Gingival blister [Recovering/Resolving]
  - Feeding disorder [Unknown]
  - Vulvovaginal erythema [Recovered/Resolved]
  - Proctalgia [Recovered/Resolved]
  - Gingival ulceration [Recovering/Resolving]
  - Vulvovaginal pain [Recovered/Resolved]
  - Rash [Not Recovered/Not Resolved]
  - Stomatitis [Recovered/Resolved]
  - Tongue ulceration [Recovering/Resolving]
  - Mucosal inflammation [Recovered/Resolved]
  - Influenza [Unknown]
  - Tongue blistering [Recovering/Resolving]
  - Vulvovaginal pruritus [Recovered/Resolved]
  - Blood glucose increased [Unknown]

NARRATIVE: CASE EVENT DATE: 2017
